FAERS Safety Report 9422547 (Version 1)
Quarter: 2013Q3

REPORT INFORMATION
  Report Type: Spontaneous
  Country: US (occurrence: US)
  Receive Date: 20130726
  Receipt Date: 20130726
  Transmission Date: 20140515
  Serious: Yes (Hospitalization, Other)
  Sender: FDA-Public Use
  Company Number: US-PFIZER INC-2013218196

PATIENT
  Age: 36 Year
  Sex: Female
  Weight: 68.03 kg

DRUGS (8)
  1. CHANTIX [Suspect]
     Indication: SMOKING CESSATION THERAPY
     Dosage: UNK
  2. NEURONTIN [Suspect]
     Indication: NEURALGIA
     Dosage: UNK
  3. NEURONTIN [Suspect]
     Indication: FIBROMYALGIA
  4. INTRAVENOUS IMMUNOGLOBULIN (IVIG) (IMMUNE GLOBULIN INTRAVENOUS (HUMAN) 10% LIQUID) [Interacting]
     Indication: RED BLOOD CELL ABNORMALITY
     Dosage: UNK, 2X/MONTH
     Route: 042
  5. METHADONE [Concomitant]
     Indication: PAIN
     Dosage: 10 MG, 2X/DAY
  6. XANAX [Concomitant]
     Indication: ANXIETY
     Dosage: UNK
  7. XANAX [Concomitant]
     Indication: STRESS
  8. SOMA [Concomitant]
     Dosage: UNK

REACTIONS (6)
  - Blood glucose increased [Unknown]
  - Drug interaction [Unknown]
  - Immune system disorder [Unknown]
  - Off label use [Unknown]
  - Convulsion [Recovered/Resolved]
  - Dyspnoea [Recovered/Resolved]
